FAERS Safety Report 9069541 (Version 1)
Quarter: 2013Q1

REPORT INFORMATION
  Report Type: Spontaneous
  Country: DE (occurrence: DE)
  Receive Date: 20130215
  Receipt Date: 20130215
  Transmission Date: 20140127
  Serious: Yes (Hospitalization)
  Sender: FDA-Public Use
  Company Number: DE-MYLANLABS-2013S1002610

PATIENT
  Age: 73 Year
  Sex: Female
  Weight: 62 kg

DRUGS (3)
  1. ALENDRONAT [Suspect]
     Indication: OSTEOPOROSIS
     Dosage: DAILY DOSE: 70 MG MILLIGRAM(S) EVERY WEEK
     Route: 048
     Dates: start: 201207
  2. OPIPRAMOL [Concomitant]
     Indication: DEPRESSION
     Route: 048
  3. RESTEX [Concomitant]
     Indication: RESTLESS LEGS SYNDROME
     Route: 048

REACTIONS (5)
  - Face oedema [Recovering/Resolving]
  - Glossodynia [Not Recovered/Not Resolved]
  - Paraesthesia oral [Not Recovered/Not Resolved]
  - Tongue ulceration [Not Recovered/Not Resolved]
  - Tongue discolouration [Not Recovered/Not Resolved]
